FAERS Safety Report 11535735 (Version 1)
Quarter: 2015Q3

REPORT INFORMATION
  Report Type: Spontaneous
  Country: US (occurrence: None)
  Receive Date: 20150921
  Receipt Date: 20150921
  Transmission Date: 20151125
  Serious: Yes (Life-Threatening, Disabling, Other)
  Sender: FDA-Public Use
  Company Number: None

PATIENT
  Age: 67 Year
  Sex: Female

DRUGS (7)
  1. LEVOTHYROXIN [Concomitant]
     Active Substance: LEVOTHYROXINE
  2. CURCUMIN [Concomitant]
     Active Substance: CURCUMIN
  3. LANTUS [Suspect]
     Active Substance: INSULIN GLARGINE
     Indication: TYPE 1 DIABETES MELLITUS
     Dosage: 12 UNITS-AM; 5 UNITS-PM TWICE DAILY GIVEN INTO/UNDER THE SKIN
  4. CAYENNE PEPPER [Concomitant]
     Active Substance: CAPSICUM
  5. GLUCAGON. [Concomitant]
     Active Substance: GLUCAGON
  6. APIDRA [Suspect]
     Active Substance: INSULIN GLULISINE
     Indication: TYPE 1 DIABETES MELLITUS
     Dosage: AS NEEDED AS NEEDED GIVEN INTO/UNDER THE SKIN
  7. MULTIPLE VITAMINS + MINERAL SUPPLEMENTS [Concomitant]

REACTIONS (3)
  - Product quality issue [None]
  - Drug effect variable [None]
  - Shock hypoglycaemic [None]

NARRATIVE: CASE EVENT DATE: 20150919
